FAERS Safety Report 5796139-9 (Version None)
Quarter: 2008Q3

REPORT INFORMATION
  Report Type: 
  Country: None (occurrence: None)
  Receive Date: 20080701
  Receipt Date: 20080627
  Transmission Date: 20090109
  Serious: Yes (Death, Hospitalization)
  Sender: FDA-Public Use
  Company Number: US-BRISTOL-MYERS SQUIBB COMPANY-14154249

PATIENT
  Age: 32 Year
  Sex: Male
  Weight: 82 kg

DRUGS (4)
  1. ERBITUX [Suspect]
     Indication: HEAD AND NECK CANCER
     Dosage: NO LOADING DOSE GIVEN.
     Route: 042
     Dates: start: 20080402
  2. METHADON HCL TAB [Suspect]
     Indication: PAIN PROPHYLAXIS
  3. LORTAB [Suspect]
     Indication: PAIN PROPHYLAXIS
  4. DURAGESIC-100 [Suspect]
     Indication: PAIN PROPHYLAXIS

REACTIONS (4)
  - ANOXIC ENCEPHALOPATHY [None]
  - CARDIO-RESPIRATORY ARREST [None]
  - DYSPNOEA [None]
  - SYNCOPE [None]
